FAERS Safety Report 7921076-0 (Version None)
Quarter: 2011Q4

REPORT INFORMATION
  Report Type: 
  Country: None (occurrence: None)
  Receive Date: 20111117
  Receipt Date: 20111110
  Transmission Date: 20120403
  Serious: Yes (Hospitalization, Other)
  Sender: FDA-Public Use
  Company Number: US-MERCK-1108USA02953

PATIENT
  Age: 64 Year
  Sex: Female

DRUGS (6)
  1. VITAMIN D (UNSPECIFIED) [Concomitant]
     Route: 065
     Dates: start: 19940101
  2. ALENDRONATE SODIUM [Suspect]
     Indication: OSTEOPOROSIS
     Route: 065
     Dates: start: 20090101, end: 20090801
  3. FOSAMAX [Suspect]
     Route: 048
     Dates: start: 19950101, end: 20030101
  4. VITAMINS (UNSPECIFIED) [Concomitant]
     Route: 065
     Dates: start: 19940101
  5. CALCIUM (UNSPECIFIED) [Concomitant]
     Route: 065
     Dates: start: 19940101
  6. FOSAMAX [Suspect]
     Indication: OSTEOPOROSIS
     Route: 048
     Dates: start: 19950101, end: 20080201

REACTIONS (49)
  - HYPERLIPIDAEMIA [None]
  - FOOT FRACTURE [None]
  - PEPTIC ULCER [None]
  - OSTEOARTHRITIS [None]
  - DEPRESSION [None]
  - IRRITABLE BOWEL SYNDROME [None]
  - GASTRITIS [None]
  - SYNOVITIS [None]
  - STRESS [None]
  - RECTAL FISSURE [None]
  - RASH [None]
  - VULVOVAGINAL CANDIDIASIS [None]
  - PAIN IN EXTREMITY [None]
  - TREMOR [None]
  - MUSCULAR WEAKNESS [None]
  - DENTAL CARE [None]
  - CONTUSION [None]
  - LICHEN PLANUS [None]
  - ARTHRALGIA [None]
  - URINARY INCONTINENCE [None]
  - FALL [None]
  - BLOOD PRESSURE INCREASED [None]
  - GASTROOESOPHAGEAL REFLUX DISEASE [None]
  - RHINITIS ALLERGIC [None]
  - DERMATITIS CONTACT [None]
  - WRIST FRACTURE [None]
  - ANXIETY [None]
  - BUNION [None]
  - HERPES ZOSTER [None]
  - SURGERY [None]
  - DIARRHOEA [None]
  - DYSTONIA [None]
  - ANTIBODY TEST POSITIVE [None]
  - ANTINUCLEAR ANTIBODY POSITIVE [None]
  - HYPERTENSION [None]
  - SLEEP DISORDER [None]
  - PUS IN STOOL [None]
  - DRY MOUTH [None]
  - VITAMIN B12 DEFICIENCY [None]
  - ATROPHIC VULVOVAGINITIS [None]
  - COUGH [None]
  - LUNG NEOPLASM [None]
  - BLOOD CHOLESTEROL INCREASED [None]
  - GRANULOMA [None]
  - SLEEP APNOEA SYNDROME [None]
  - FEMUR FRACTURE [None]
  - COLONIC POLYP [None]
  - URINARY TRACT INFECTION [None]
  - OEDEMA PERIPHERAL [None]
